FAERS Safety Report 10700587 (Version 1)
Quarter: 2014Q4

REPORT INFORMATION
  Report Type: Spontaneous
  Country: US (occurrence: None)
  Receive Date: 20141224
  Receipt Date: 20141224
  Transmission Date: 20150529
  Serious: Yes (Other)
  Sender: FDA-Public Use
  Company Number: PHEH2014US015797

PATIENT
  Weight: 39.9 kg

DRUGS (1)
  1. ZYKADIA [Suspect]
     Active Substance: CERITINIB

REACTIONS (4)
  - Nausea [None]
  - Palpitations [None]
  - Dyspnoea [None]
  - Tachycardia [None]
